FAERS Safety Report 15854374 (Version 1)
Quarter: 2019Q1

REPORT INFORMATION
  Report Type: Spontaneous
  Country: US (occurrence: US)
  Receive Date: 20190122
  Receipt Date: 20190122
  Transmission Date: 20190417
  Serious: Yes (Life-Threatening, Hospitalization, Disabling, Other)
  Sender: FDA-Public Use
  Company Number: None

PATIENT
  Age: 42 Year
  Sex: Male
  Weight: 121.5 kg

DRUGS (2)
  1. LATUDA [Suspect]
     Active Substance: LURASIDONE HYDROCHLORIDE
     Indication: OFF LABEL USE
     Dosage: ?          QUANTITY:1 TABLET(S);?
     Route: 048
     Dates: start: 20171024, end: 20180501
  2. VERAPAMIL 80 MG 3 TIMES DAILY [Suspect]
     Active Substance: VERAPAMIL HYDROCHLORIDE

REACTIONS (7)
  - Liver disorder [None]
  - Drug interaction [None]
  - Seizure [None]
  - Head injury [None]
  - Renal disorder [None]
  - Product prescribing error [None]
  - Fall [None]

NARRATIVE: CASE EVENT DATE: 20171216
